FAERS Safety Report 22090912 (Version 1)
Quarter: 2023Q1

REPORT INFORMATION
  Report Type: Spontaneous
  Country: JP (occurrence: JP)
  Receive Date: 20230314
  Receipt Date: 20230314
  Transmission Date: 20230418
  Serious: Yes (Death, Hospitalization, Other)
  Sender: FDA-Public Use
  Company Number: JP-STRIDES ARCOLAB LIMITED-2023SP003708

PATIENT
  Age: 89 Year
  Sex: Female

DRUGS (2)
  1. PREDNISOLONE [Suspect]
     Active Substance: PREDNISOLONE
     Indication: Pemphigus
     Dosage: 15 MILLIGRAM, PER DAY, FOR THE PREVIOUS 2 MONTHS
     Route: 048
  2. PREDNISOLONE [Suspect]
     Active Substance: PREDNISOLONE
     Indication: Rheumatoid arthritis
     Dosage: 2 MILLIGRAM, PER DAY, FOR RHEUMATOID ARTHRITIS
     Route: 065

REACTIONS (3)
  - Eczema herpeticum [Fatal]
  - Multiple organ dysfunction syndrome [Fatal]
  - Drug ineffective [Unknown]
